FAERS Safety Report 10430478 (Version 6)
Quarter: 2024Q2

REPORT INFORMATION
  Report Type: Spontaneous
  Country: US (occurrence: US)
  Receive Date: 20140904
  Receipt Date: 20240417
  Transmission Date: 20240716
  Serious: Yes (Other)
  Sender: FDA-Public Use
  Company Number: US-JNJFOC-20140827291

PATIENT
  Sex: Male

DRUGS (1)
  1. RISPERDAL [Suspect]
     Active Substance: RISPERIDONE
     Indication: Bipolar disorder
     Dosage: 0.25-0.5 MG
     Route: 048
     Dates: start: 20060901, end: 20070213

REACTIONS (2)
  - Gynaecomastia [Unknown]
  - Obesity [Recovering/Resolving]

NARRATIVE: CASE EVENT DATE: 20060101
